FAERS Safety Report 5965101-5 (Version None)
Quarter: 2008Q4

REPORT INFORMATION
  Report Type: 
  Country: None (occurrence: None)
  Receive Date: 20081125
  Receipt Date: 20081112
  Transmission Date: 20090506
  Serious: Yes (Other)
  Sender: FDA-Public Use
  Company Number: ES-GENENTECH-271962

PATIENT
  Age: 60 Year
  Sex: Male

DRUGS (1)
  1. AVASTIN [Suspect]
     Indication: RECTAL CANCER
     Dosage: UNK
     Route: 065

REACTIONS (1)
  - COLITIS ISCHAEMIC [None]
